FAERS Safety Report 9539530 (Version 1)
Quarter: 2013Q2

REPORT INFORMATION
  Report Type: Spontaneous
  Country: US (occurrence: None)
  Receive Date: 20130507
  Receipt Date: 20130507
  Transmission Date: 20140414
  Serious: No
  Sender: FDA-Public Use
  Company Number: PHEH2013US004641

PATIENT
  Age: 63 Year
  Sex: Female

DRUGS (3)
  1. AFINITOR (RAD) UNKNOWN [Suspect]
  2. METFORMIN (METFORMIN) [Concomitant]
  3. AROMASIN (EXEMESTANE) [Concomitant]

REACTIONS (2)
  - Hypertension [None]
  - Blood glucose increased [None]
